FAERS Safety Report 9214930 (Version 1)
Quarter: 2013Q2

REPORT INFORMATION
  Report Type: Spontaneous
  Country: FR (occurrence: FR)
  Receive Date: 20130405
  Receipt Date: 20130405
  Transmission Date: 20140414
  Serious: Yes (Hospitalization)
  Sender: FDA-Public Use
  Company Number: FR-GLAXOSMITHKLINE-B0878963A

PATIENT
  Age: 82 Year
  Sex: Male

DRUGS (8)
  1. DEROXAT [Suspect]
     Indication: PRODUCT USED FOR UNKNOWN INDICATION
     Dosage: 20MG PER DAY
     Route: 048
  2. RISPERDAL [Suspect]
     Indication: PRODUCT USED FOR UNKNOWN INDICATION
     Route: 048
     Dates: start: 20121023, end: 20130111
  3. AVODART [Concomitant]
     Dosage: .5MG PER DAY
     Route: 048
  4. INIPOMP [Concomitant]
     Dosage: 20MG PER DAY
     Route: 048
  5. KARDEGIC [Concomitant]
     Dosage: 75MG PER DAY
     Route: 048
  6. SECTRAL [Concomitant]
     Dosage: 200MG PER DAY
     Route: 048
  7. DEPAMIDE [Concomitant]
     Dosage: 300MG TWICE PER DAY
     Route: 048
  8. IMOVANE [Concomitant]
     Dosage: 3.75MG PER DAY
     Route: 048

REACTIONS (2)
  - Extrapyramidal disorder [Recovered/Resolved]
  - Drug interaction [Unknown]
